FAERS Safety Report 4537531-X (Version None)
Quarter: 2004Q4

REPORT INFORMATION
  Report Type: 
  Country: None (occurrence: None)
  Receive Date: 20041221
  Receipt Date: 20041012
  Transmission Date: 20050328
  Serious: No
  Sender: FDA-Public Use
  Company Number: A-US2004-07733

PATIENT
  Sex: Female

DRUGS (6)
  1. TRACLEER [Suspect]
     Indication: PULMONARY HYPERTENSION
     Dosage: 62.5 MG, BID, ORAL
     Route: 048
     Dates: start: 20040911, end: 20041008
  2. ZESTRIL [Concomitant]
  3. PLENDIL [Concomitant]
  4. ZELNORM [Concomitant]
  5. AMARYL [Concomitant]
  6. SYNTHROID [Concomitant]

REACTIONS (3)
  - FATIGUE [None]
  - SOMNOLENCE [None]
  - VOMITING [None]
